FAERS Safety Report 5474645-4 (Version None)
Quarter: 2007Q4

REPORT INFORMATION
  Report Type: 
  Country: None (occurrence: None)
  Receive Date: 20071002
  Receipt Date: 20070928
  Transmission Date: 20080405
  Serious: Yes (Other)
  Sender: FDA-Public Use
  Company Number: US-ASTRAZENECA-2007UW20255

PATIENT
  Sex: Female

DRUGS (1)
  1. ARIMIDEX [Suspect]
     Route: 048

REACTIONS (6)
  - ANXIETY [None]
  - ARTHRALGIA [None]
  - GINGIVAL SWELLING [None]
  - HOT FLUSH [None]
  - PAIN IN EXTREMITY [None]
  - WEIGHT INCREASED [None]
